FAERS Safety Report 5470538-7 (Version None)
Quarter: 2007Q3

REPORT INFORMATION
  Report Type: 
  Country: None (occurrence: None)
  Receive Date: 20070927
  Receipt Date: 20070927
  Transmission Date: 20080115
  Serious: Yes (Hospitalization)
  Sender: FDA-Public Use
  Company Number: None

PATIENT
  Age: 56 Year
  Sex: Male
  Weight: 54.4 kg

DRUGS (2)
  1. SORAFENIB 200 MG BAYER [Suspect]
     Indication: RENAL CELL CARCINOMA STAGE UNSPECIFIED
     Dosage: 400 MG BID PO
     Route: 048
     Dates: start: 20070918, end: 20070923
  2. NEXAVAR [Suspect]

REACTIONS (2)
  - BLOOD PRESSURE INCREASED [None]
  - HEADACHE [None]
